FAERS Safety Report 4704636-X (Version None)
Quarter: 2005Q2

REPORT INFORMATION
  Report Type: 
  Country: None (occurrence: None)
  Receive Date: 20050629
  Receipt Date: 20050613
  Transmission Date: 20051028
  Serious: Yes (Other)
  Sender: FDA-Public Use
  Company Number: 200505079

PATIENT
  Age: 45 Year
  Sex: Female

DRUGS (5)
  1. ALESION (EPINASTINE) [Suspect]
     Indication: SEASONAL ALLERGY
     Dosage: 20 MG DAILY
     Dates: end: 20030901
  2. ALESION (EPINASTINE) [Suspect]
     Indication: URTICARIA
     Dosage: 20 MG DAILY
     Dates: end: 20030901
  3. ALESION (EPINASTINE) [Suspect]
     Indication: SEASONAL ALLERGY
     Dosage: 20 MG DAILY
     Dates: start: 20050101, end: 20050225
  4. ALESION (EPINASTINE) [Suspect]
     Indication: URTICARIA
     Dosage: 20 MG DAILY
     Dates: start: 20050101, end: 20050225
  5. CELESTAMINE TAB [Concomitant]

REACTIONS (1)
  - VENTRICULAR EXTRASYSTOLES [None]
